FAERS Safety Report 11147352 (Version 1)
Quarter: 2015Q2

REPORT INFORMATION
  Report Type: Spontaneous
  Country: US (occurrence: US)
  Receive Date: 20150528
  Receipt Date: 20150528
  Transmission Date: 20150821
  Serious: No
  Sender: FDA-Public Use
  Company Number: US-ASTRAZENECA-2015SE50526

PATIENT
  Sex: Female
  Weight: 54 kg

DRUGS (12)
  1. SYMBICORT [Suspect]
     Active Substance: BUDESONIDE\FORMOTEROL FUMARATE DIHYDRATE
     Indication: DYSPNOEA
     Dosage: 160/4.5 INHALER, 2 PUFFS TWICE A DAY
     Route: 055
     Dates: start: 20150416, end: 20150514
  2. SYMBICORT [Suspect]
     Active Substance: BUDESONIDE\FORMOTEROL FUMARATE DIHYDRATE
     Indication: SECRETION DISCHARGE
     Dosage: 160/4.5 INHALER, 2 PUFFS TWICE A DAY
     Route: 055
     Dates: start: 20150517
  3. ZYRTEC [Concomitant]
     Active Substance: CETIRIZINE HYDROCHLORIDE
     Indication: HYPERSENSITIVITY
     Route: 048
     Dates: start: 20150416
  4. SYMBICORT [Suspect]
     Active Substance: BUDESONIDE\FORMOTEROL FUMARATE DIHYDRATE
     Indication: ASTHMA
     Dosage: 160/4.5 INHALER, 2 PUFFS TWICE A DAY
     Route: 055
     Dates: start: 20150517
  5. BONIVA [Concomitant]
     Active Substance: IBANDRONATE SODIUM
  6. SYMBICORT [Suspect]
     Active Substance: BUDESONIDE\FORMOTEROL FUMARATE DIHYDRATE
     Indication: ASTHMA
     Dosage: 160/4.5 INHALER, 2 PUFFS TWICE A DAY
     Route: 055
     Dates: start: 20150416, end: 20150514
  7. PREMARIN [Concomitant]
     Active Substance: ESTROGENS, CONJUGATED
     Indication: MENOPAUSAL DISORDER
     Route: 061
     Dates: start: 201410
  8. DYMISTA [Concomitant]
     Active Substance: AZELASTINE HYDROCHLORIDE\FLUTICASONE PROPIONATE
     Indication: HYPERSENSITIVITY
     Route: 045
     Dates: start: 20150416
  9. VITAMIN D3 [Concomitant]
     Active Substance: CHOLECALCIFEROL
     Indication: OSTEOPENIA
     Route: 048
     Dates: start: 2013
  10. SYMBICORT [Suspect]
     Active Substance: BUDESONIDE\FORMOTEROL FUMARATE DIHYDRATE
     Indication: SECRETION DISCHARGE
     Dosage: 160/4.5 INHALER, 2 PUFFS TWICE A DAY
     Route: 055
     Dates: start: 20150416, end: 20150514
  11. SYMBICORT [Suspect]
     Active Substance: BUDESONIDE\FORMOTEROL FUMARATE DIHYDRATE
     Indication: DYSPNOEA
     Dosage: 160/4.5 INHALER, 2 PUFFS TWICE A DAY
     Route: 055
     Dates: start: 20150517
  12. PROAIR HFA [Concomitant]
     Active Substance: ALBUTEROL SULFATE
     Indication: MULTIPLE ALLERGIES
     Route: 055

REACTIONS (5)
  - Middle insomnia [Unknown]
  - Arthralgia [Unknown]
  - Muscle spasms [Unknown]
  - Bone pain [Unknown]
  - Chest discomfort [Unknown]
